FAERS Safety Report 4469737-2 (Version None)
Quarter: 2004Q3

REPORT INFORMATION
  Report Type: 
  Country: None (occurrence: None)
  Receive Date: 20040917
  Receipt Date: 20040322
  Transmission Date: 20050211
  Serious: Yes (Hospitalization)
  Sender: FDA-Public Use
  Company Number: PHEH2004US01961

PATIENT
  Age: 15 Year
  Sex: Male
  Weight: 51.4 kg

DRUGS (1)
  1. FEMARA [Suspect]
     Indication: BONE DISORDER
     Dosage: 2.4 MG, QD, ORAL
     Route: 048
     Dates: start: 20030601, end: 20040212

REACTIONS (10)
  - ANTICONVULSANT DRUG LEVEL ABOVE THERAPEUTIC [None]
  - ARTERIOSPASM CORONARY [None]
  - BLOOD CREATINE PHOSPHOKINASE MB INCREASED [None]
  - CARDIAC ENZYMES INCREASED [None]
  - CARDIAC FAILURE [None]
  - CHEST PAIN [None]
  - HEADACHE [None]
  - MYOCARDIAL INFARCTION [None]
  - PAIN IN EXTREMITY [None]
  - TROPONIN INCREASED [None]
